FAERS Safety Report 8538618-7 (Version None)
Quarter: 2012Q3

REPORT INFORMATION
  Report Type: 
  Country: None (occurrence: None)
  Receive Date: 20120718
  Receipt Date: 20120718
  Transmission Date: 20120928
  Serious: No
  Sender: FDA-Public Use
  Company Number: None

PATIENT
  Age: 87 Year
  Sex: Female
  Weight: 63.5036 kg

DRUGS (1)
  1. TOVIAZ [Suspect]
     Indication: POLLAKIURIA
     Dosage: 18 DAYS 1X MOUTH
     Route: 048
     Dates: start: 20120613, end: 20120630

REACTIONS (3)
  - MEMORY IMPAIRMENT [None]
  - CONSTIPATION [None]
  - AMNESIA [None]
